FAERS Safety Report 11216637 (Version 1)
Quarter: 2015Q2

REPORT INFORMATION
  Report Type: Spontaneous
  Country: US (occurrence: US)
  Receive Date: 20150624
  Receipt Date: 20150624
  Transmission Date: 20150821
  Serious: Yes (Hospitalization, Other)
  Sender: FDA-Public Use
  Company Number: US-APOTEX-2015AP010180

PATIENT

DRUGS (2)
  1. BENAZEPRIL HYDROCHLORIDE. [Suspect]
     Active Substance: BENAZEPRIL HYDROCHLORIDE
     Indication: PRODUCT USED FOR UNKNOWN INDICATION
     Dosage: 480MG
     Route: 048
  2. AMLODIPINE BESYLATE. [Suspect]
     Active Substance: AMLODIPINE BESYLATE
     Indication: PRODUCT USED FOR UNKNOWN INDICATION
     Dosage: 240MG
     Route: 048

REACTIONS (6)
  - Pneumonia aspiration [Unknown]
  - Mental status changes [Unknown]
  - Hyperdynamic left ventricle [Unknown]
  - Hypotension [Recovering/Resolving]
  - Toxicity to various agents [Recovering/Resolving]
  - Overdose [Recovering/Resolving]
